FAERS Safety Report 9564802 (Version 2)
Quarter: 2013Q3

REPORT INFORMATION
  Report Type: Report from Study
  Country: CA (occurrence: CA)
  Receive Date: 20130930
  Receipt Date: 20130930
  Transmission Date: 20140515
  Serious: Yes (Death, Hospitalization)
  Sender: FDA-Public Use
  Company Number: PHHY2013CA010713

PATIENT
  Age: 47 Year
  Sex: Male

DRUGS (1)
  1. ZOMETA [Suspect]
     Indication: RENAL CELL CARCINOMA
     Dosage: 4 MG, EVERY 8 WEEKS
     Route: 042
     Dates: start: 20121205

REACTIONS (5)
  - Death [Fatal]
  - Back pain [Unknown]
  - Malaise [Unknown]
  - Flatulence [Unknown]
  - Movement disorder [Unknown]
